FAERS Safety Report 23590823 (Version 2)
Quarter: 2024Q1

REPORT INFORMATION
  Report Type: Spontaneous
  Country: ES (occurrence: ES)
  Receive Date: 20240304
  Receipt Date: 20240307
  Transmission Date: 20240409
  Serious: Yes (Hospitalization)
  Sender: FDA-Public Use
  Company Number: ES-ABBVIE-5533432

PATIENT
  Age: 49 Year
  Sex: Male

DRUGS (2)
  1. UPADACITINIB [Suspect]
     Active Substance: UPADACITINIB
     Indication: Crohn^s disease
     Dosage: FIRST 12 WEEKS
     Route: 048
     Dates: start: 202306
  2. PENTASA [Concomitant]
     Active Substance: MESALAMINE
     Indication: Product used for unknown indication
     Dates: start: 2023, end: 2023

REACTIONS (11)
  - Feeling abnormal [Unknown]
  - C-reactive protein increased [Unknown]
  - Vision blurred [Unknown]
  - Hyponatraemia [Unknown]
  - Malnutrition [Unknown]
  - Faecal calprotectin abnormal [Recovering/Resolving]
  - Hypokalaemia [Unknown]
  - Magnesium deficiency [Unknown]
  - Delusion [Unknown]
  - Disorientation [Unknown]
  - Hypocalcaemia [Unknown]

NARRATIVE: CASE EVENT DATE: 20230101
